FAERS Safety Report 8985707 (Version 1)
Quarter: 2012Q4

REPORT INFORMATION
  Report Type: 
  Country: CH (occurrence: CH)
  Receive Date: 20121226
  Receipt Date: 20121226
  Transmission Date: 20130627
  Serious: Yes (Life-Threatening)
  Sender: FDA-Public Use
  Company Number: CH-PFIZER INC-2012322666

PATIENT
  Age: 78 Year
  Sex: Female

DRUGS (6)
  1. TOVIAZ [Suspect]
     Indication: MICTURITION DISORDER
     Dosage: 4 mg, 1x/day
     Route: 048
     Dates: end: 201211
  2. XENAZINE [Interacting]
     Indication: HUNTINGTON^S DISEASE
     Dosage: 37.5 mg, 1x/day
     Route: 048
     Dates: start: 201206
  3. SEROQUEL [Interacting]
     Indication: CONDUCT DISORDER
     Dosage: 125 mg, 1x/day
     Route: 048
     Dates: end: 20121115
  4. ABILIFY [Interacting]
     Dosage: 5 mg, 1x/day
     Route: 048
     Dates: start: 20121115
  5. PANTOPRAZOL [Concomitant]
     Dosage: 20 mg, 1x/day
     Route: 048
  6. SELIPRAN [Concomitant]
     Dosage: 20 mg, 1x/day
     Route: 048

REACTIONS (2)
  - Drug interaction [Not Recovered/Not Resolved]
  - Electrocardiogram QT prolonged [Not Recovered/Not Resolved]
